FAERS Safety Report 16938893 (Version 2)
Quarter: 2020Q3

REPORT INFORMATION
  Report Type: Report from Study
  Country: CA (occurrence: CA)
  Receive Date: 20191020
  Receipt Date: 20191203
  Transmission Date: 20201105
  Serious: Yes (Other)
  Sender: FDA-Public Use
  Company Number: PHHO2018CA012893

PATIENT
  Age: 61 Year
  Sex: Female
  Weight: 60 kg

DRUGS (7)
  1. LAG525 [Suspect]
     Active Substance: IERAMILIMAB
     Indication: TRIPLE NEGATIVE BREAST CANCER
     Dosage: 400 MG, Q3W
     Route: 042
     Dates: start: 20181019, end: 20181109
  2. PANTOLOC [Concomitant]
     Active Substance: PANTOPRAZOLE SODIUM
     Indication: GASTROOESOPHAGEAL REFLUX DISEASE
     Dosage: UNK
     Route: 065
     Dates: start: 20080301
  3. CARBOPLATIN. [Suspect]
     Active Substance: CARBOPLATIN
     Indication: TRIPLE NEGATIVE BREAST CANCER
     Dosage: NO TREATMENT
     Route: 065
  4. SPARTALIZUMAB [Suspect]
     Active Substance: SPARTALIZUMAB
     Indication: TRIPLE NEGATIVE BREAST CANCER
     Dosage: 300 MG, Q3W
     Route: 042
     Dates: start: 20181019, end: 20181109
  5. CARBOPLATIN. [Suspect]
     Active Substance: CARBOPLATIN
     Dosage: UNK
     Route: 041
     Dates: start: 20181207
  6. GRAVOL [Concomitant]
     Active Substance: DIMENHYDRINATE
     Indication: ANXIETY
     Dosage: UNK
     Route: 065
     Dates: start: 20080101
  7. ATIVAN [Concomitant]
     Active Substance: LORAZEPAM
     Indication: ANXIETY
     Dosage: UNK
     Route: 065
     Dates: start: 20181001

REACTIONS (1)
  - Disease progression [Recovered/Resolved]

NARRATIVE: CASE EVENT DATE: 20181130
